FAERS Safety Report 11124983 (Version 1)
Quarter: 2015Q2

REPORT INFORMATION
  Report Type: Spontaneous
  Country: CN (occurrence: CN)
  Receive Date: 20150520
  Receipt Date: 20150520
  Transmission Date: 20150821
  Serious: Yes (Other)
  Sender: FDA-Public Use
  Company Number: CN-PFIZER INC-2015167105

PATIENT
  Age: 65 Year
  Sex: Male
  Weight: 62.5 kg

DRUGS (14)
  1. SOLU-MEDROL [Suspect]
     Active Substance: METHYLPREDNISOLONE SODIUM SUCCINATE
     Dosage: 40 MG, 1X/DAY
     Route: 041
     Dates: start: 20140930, end: 20141002
  2. SOLU-MEDROL [Suspect]
     Active Substance: METHYLPREDNISOLONE SODIUM SUCCINATE
     Dosage: 40 MG, 2X/DAY
     Route: 041
     Dates: start: 20140928, end: 20140929
  3. OMEPRAZOLE. [Concomitant]
     Active Substance: OMEPRAZOLE
     Indication: PROPHYLAXIS
     Dosage: 20 MG, 1X/DAY
     Route: 048
     Dates: start: 20140927, end: 20141013
  4. TALCID [Concomitant]
     Active Substance: HYDROTALCITE
     Indication: PROPHYLAXIS
     Dosage: 500 MG, 3X/DAY
     Route: 048
     Dates: start: 20140927, end: 20141013
  5. ROCALTROL [Concomitant]
     Active Substance: CALCITRIOL
     Indication: MINERAL SUPPLEMENTATION
     Dosage: 0.25 G, 1X/DAY
     Route: 048
     Dates: start: 20140927, end: 20141013
  6. SULPERAZON [Suspect]
     Active Substance: CEFOPERAZONE SODIUM\SULBACTAM SODIUM
     Indication: INFECTION
     Dosage: 3 G, 3X/DAY
     Route: 041
     Dates: start: 20140926, end: 20141006
  7. MINOCIN [Suspect]
     Active Substance: MINOCYCLINE HYDROCHLORIDE
     Indication: INFECTION
     Dosage: 100 MG, 2X/DAY
     Route: 048
     Dates: start: 20140927, end: 20140929
  8. MUCOSOLVAN [Concomitant]
     Active Substance: AMBROXOL\CLENBUTEROL
     Indication: SPUTUM ABNORMAL
     Dosage: 90 MG, 1X/DAY
     Route: 041
     Dates: start: 20140926, end: 20141006
  9. HYDROCHLOROTHIAZIDE. [Concomitant]
     Active Substance: HYDROCHLOROTHIAZIDE
     Indication: POLYURIA
     Dosage: 25 MG, 1X/DAY
     Route: 048
     Dates: start: 20140930, end: 20141003
  10. SOLU-MEDROL [Suspect]
     Active Substance: METHYLPREDNISOLONE SODIUM SUCCINATE
     Indication: INFECTION
     Dosage: 80 MG, 2X/DAY
     Route: 041
     Dates: start: 20140926, end: 20140927
  11. SPIRONOLACTONE. [Concomitant]
     Active Substance: SPIRONOLACTONE
     Indication: POLYURIA
     Dosage: 20 MG, 1X/DAY
     Route: 048
     Dates: start: 20140930, end: 20141003
  12. MINOCIN [Suspect]
     Active Substance: MINOCYCLINE HYDROCHLORIDE
     Dosage: 100 MG, 2X/DAY
     Route: 048
     Dates: start: 20141001, end: 20141008
  13. XIN XI PING [Concomitant]
     Indication: WHEEZING
     Dosage: 0.2 G, 1X/DAY
     Route: 048
     Dates: start: 20140927, end: 20141006
  14. CALTRATE 600+D [Concomitant]
     Indication: MINERAL SUPPLEMENTATION
     Dosage: 600 MG, 1X/DAY
     Route: 048
     Dates: start: 20140927, end: 20141013

REACTIONS (1)
  - Hepatic function abnormal [Unknown]

NARRATIVE: CASE EVENT DATE: 20141003
